FAERS Safety Report 5646708-1 (Version None)
Quarter: 2008Q1

REPORT INFORMATION
  Report Type: 
  Country: None (occurrence: None)
  Receive Date: 20080303
  Receipt Date: 20080220
  Transmission Date: 20080703
  Serious: Yes (Hospitalization)
  Sender: FDA-Public Use
  Company Number: US-AMGEN-QUU256336

PATIENT
  Sex: Male
  Weight: 58.4 kg

DRUGS (5)
  1. ENBREL [Suspect]
     Indication: JUVENILE ARTHRITIS
     Route: 058
     Dates: start: 20060118
  2. METHOTREXATE [Concomitant]
     Dates: start: 20030101
  3. CLARITIN [Concomitant]
  4. FOLIC ACID [Concomitant]
  5. SULINDAC [Concomitant]

REACTIONS (6)
  - ABDOMINAL PAIN UPPER [None]
  - DYSPNOEA [None]
  - GASTROOESOPHAGEAL REFLUX DISEASE [None]
  - PLEURITIC PAIN [None]
  - PNEUMONIA [None]
  - POSTNASAL DRIP [None]
